FAERS Safety Report 5593248-4 (Version None)
Quarter: 2008Q1

REPORT INFORMATION
  Report Type: 
  Country: None (occurrence: None)
  Receive Date: 20080115
  Receipt Date: 20080115
  Transmission Date: 20080703
  Serious: Yes (Hospitalization)
  Sender: FDA-Public Use
  Company Number: None

PATIENT
  Sex: Female
  Weight: 73 kg

DRUGS (2)
  1. ELSPAR [Suspect]
     Dosage: 36000 MILLION IU
     Dates: start: 20080108
  2. METHOTREXATE [Suspect]
     Dosage: 400 MG
     Dates: start: 20080107

REACTIONS (7)
  - BLOOD CULTURE POSITIVE [None]
  - MOUTH ULCERATION [None]
  - MUCOSAL INFLAMMATION [None]
  - NEUTROPHIL COUNT ABNORMAL [None]
  - PHARYNGEAL ULCERATION [None]
  - PYREXIA [None]
  - STAPHYLOCOCCAL INFECTION [None]
